FAERS Safety Report 7170910-3 (Version None)
Quarter: 2010Q4

REPORT INFORMATION
  Report Type: 
  Country: None (occurrence: None)
  Receive Date: 20101217
  Receipt Date: 20101206
  Transmission Date: 20110411
  Serious: Yes (Hospitalization)
  Sender: FDA-Public Use
  Company Number: FR-CELGENEUS-056-FK228-10061657

PATIENT
  Sex: Female
  Weight: 96 kg

DRUGS (37)
  1. ROMIDEPSIN [Suspect]
     Indication: PERIPHERAL T-CELL LYMPHOMA UNSPECIFIED
     Route: 051
     Dates: start: 20081009
  2. PRIMPERAN TAB [Concomitant]
     Route: 048
     Dates: start: 20081009
  3. PRIMPERAN TAB [Concomitant]
     Route: 051
     Dates: start: 20090626, end: 20090901
  4. MAGNESIUM SULFATE [Concomitant]
     Dosage: 1 AMP
     Route: 051
     Dates: start: 20081017, end: 20090213
  5. MAGNESIUM SULFATE [Concomitant]
     Route: 051
     Dates: start: 20090227, end: 20100422
  6. POTASSIUM [Concomitant]
     Dosage: 1 AMP
     Route: 051
     Dates: start: 20081017, end: 20081017
  7. DUPHALAC [Concomitant]
     Dosage: 1 SACHET
     Route: 048
     Dates: start: 20081103
  8. DIAUTALVIC [Concomitant]
     Route: 048
     Dates: start: 20081101
  9. ZOPHREN [Concomitant]
     Route: 051
     Dates: start: 20081010
  10. ZOPHREN [Concomitant]
     Route: 048
     Dates: start: 20081010
  11. ZOPHREN [Concomitant]
     Route: 054
     Dates: start: 20100520, end: 20100523
  12. ZOPHREN [Concomitant]
     Route: 054
     Dates: start: 20100527, end: 20100530
  13. TOPALGIC [Concomitant]
     Route: 048
     Dates: start: 20081114
  14. NEURONTIN [Concomitant]
     Route: 048
     Dates: start: 20081114, end: 20081116
  15. NEURONTIN [Concomitant]
     Route: 048
     Dates: start: 20081117, end: 20081119
  16. NEURONTIN [Concomitant]
     Route: 048
     Dates: start: 20081120, end: 20081122
  17. EMEND [Concomitant]
     Route: 048
     Dates: start: 20090430, end: 20090507
  18. INIPOMP [Concomitant]
     Route: 048
     Dates: start: 20090306
  19. XOLAAM [Concomitant]
     Route: 048
     Dates: start: 20090306
  20. TRAUSIPEGIC [Concomitant]
     Dosage: 1 SACHET
     Route: 048
     Dates: start: 20090306
  21. LANSOYL [Concomitant]
     Dosage: 1 SACHET
     Route: 048
     Dates: start: 20090306
  22. MAGNESIUM 2 [Concomitant]
     Dosage: 2 AMP
     Route: 051
     Dates: start: 20090515, end: 20090530
  23. MAGNESIUM 2 [Concomitant]
     Dosage: 4 AMP
     Route: 051
     Dates: start: 20090605
  24. LEVOTHYROXE [Concomitant]
     Indication: HYPOTHYROIDISM
     Route: 048
     Dates: start: 20020101
  25. ACETAMINOPHEN [Concomitant]
     Route: 048
     Dates: start: 20090601
  26. DAFALGAN [Concomitant]
     Route: 048
     Dates: start: 20090626
  27. ARNICA [Concomitant]
     Route: 048
     Dates: start: 20090821
  28. DOLIPRANE [Concomitant]
     Route: 048
     Dates: start: 20091001, end: 20091001
  29. STREPSIL [Concomitant]
     Route: 048
     Dates: start: 20091001, end: 20091001
  30. FLU VACCINE [Concomitant]
     Route: 030
     Dates: start: 20091001, end: 20091001
  31. PNEUMOCOCCUS VACCINE [Concomitant]
     Route: 030
     Dates: start: 20091001, end: 20091001
  32. VENTOLIN [Concomitant]
     Route: 048
     Dates: start: 20091112, end: 20091101
  33. VOLTARINE [Concomitant]
     Indication: PERIARTHRITIS
     Route: 048
     Dates: start: 20091116, end: 20091101
  34. MAGNESIUM B6 [Concomitant]
     Route: 048
     Dates: start: 20091230
  35. MYOLASTAN [Concomitant]
     Route: 048
     Dates: start: 20091201
  36. ANTI-MYCOTIC [Concomitant]
     Dosage: APP
     Route: 061
     Dates: start: 20100401, end: 20100401
  37. MUSCLE RELAXANT [Concomitant]
     Route: 065

REACTIONS (6)
  - BLOOD TRIGLYCERIDES INCREASED [None]
  - FALL [None]
  - HAEMATEMESIS [None]
  - PERIARTHRITIS [None]
  - PERIPHERAL SENSORY NEUROPATHY [None]
  - TENDON DISORDER [None]
